FAERS Safety Report 8280991-1 (Version None)
Quarter: 2012Q2

REPORT INFORMATION
  Report Type: 
  Country: None (occurrence: None)
  Receive Date: 20120412
  Receipt Date: 20120327
  Transmission Date: 20120825
  Serious: Yes (Life-Threatening, Hospitalization, Other)
  Sender: FDA-Public Use
  Company Number: AT-BAXTER-2012BH002143

PATIENT
  Sex: Female
  Weight: 65 kg

DRUGS (3)
  1. NOVOTHYRAL [Concomitant]
     Route: 048
  2. TISSEEL VH KIT [Suspect]
     Indication: VASCULAR PSEUDOANEURYSM
     Route: 061
     Dates: start: 20120120, end: 20120120
  3. PLAVIX [Concomitant]
     Indication: STENT PLACEMENT
     Route: 048

REACTIONS (3)
  - ARTERIAL THROMBOSIS [None]
  - DRUG INEFFECTIVE [None]
  - THROMBOSIS [None]
